FAERS Safety Report 15369118 (Version 1)
Quarter: 2018Q3

REPORT INFORMATION
  Report Type: Spontaneous
  Country: SA (occurrence: SA)
  Receive Date: 20180911
  Receipt Date: 20180911
  Transmission Date: 20181010
  Serious: Yes (Hospitalization, Other)
  Sender: FDA-Public Use
  Company Number: SA-SUN PHARMACEUTICAL INDUSTRIES LTD-2018RR-183964

PATIENT
  Age: 23 Year
  Sex: Female

DRUGS (1)
  1. METFORMIN [Suspect]
     Active Substance: METFORMIN HYDROCHLORIDE
     Indication: WEIGHT DECREASED
     Dosage: AROUND 60 TABLETS OF 500 MG
     Route: 048

REACTIONS (7)
  - Toxicity to various agents [Unknown]
  - Suicide attempt [Unknown]
  - Hyperphosphataemia [Unknown]
  - Hypoglycaemia [Unknown]
  - Lactic acidosis [Unknown]
  - Leukocytosis [Unknown]
  - Blood creatinine increased [Unknown]
